FAERS Safety Report 25607239 (Version 1)
Quarter: 2025Q3

REPORT INFORMATION
  Report Type: Spontaneous
  Country: US (occurrence: US)
  Receive Date: 20250725
  Receipt Date: 20250725
  Transmission Date: 20251021
  Serious: Yes (Other)
  Sender: PURDUE
  Company Number: US-PURDUE-USA-2025-0319172

PATIENT
  Sex: Female

DRUGS (1)
  1. HYDROCODONE BITARTRATE [Suspect]
     Active Substance: HYDROCODONE BITARTRATE
     Indication: Product used for unknown indication
     Route: 065

REACTIONS (6)
  - Loss of consciousness [Unknown]
  - Victim of sexual abuse [Unknown]
  - Drug screen positive [Unknown]
  - Disorientation [Unknown]
  - Emotional distress [Unknown]
  - Incoherent [Unknown]
